FAERS Safety Report 9858697 (Version 1)
Quarter: 2014Q1

REPORT INFORMATION
  Report Type: Spontaneous
  Country: IT (occurrence: IT)
  Receive Date: 20140131
  Receipt Date: 20140131
  Transmission Date: 20141002
  Serious: Yes (Hospitalization)
  Sender: FDA-Public Use
  Company Number: IT-SA-2014SA011096

PATIENT
  Age: 63 Year
  Sex: Male

DRUGS (1)
  1. INDAPAMIDE [Suspect]
     Indication: HYPERTENSION
     Route: 065

REACTIONS (10)
  - Rhabdomyolysis [Recovering/Resolving]
  - Myalgia [Recovered/Resolved]
  - Muscular weakness [Recovered/Resolved]
  - Blood creatine phosphokinase increased [Recovered/Resolved]
  - Transaminases increased [Unknown]
  - Aldolase increased [Unknown]
  - Myoglobin blood increased [Recovered/Resolved]
  - Myoglobin urine present [Recovered/Resolved]
  - Myopathy [Recovered/Resolved]
  - Hypokalaemia [Recovered/Resolved]
